FAERS Safety Report 4826029-7 (Version None)
Quarter: 2005Q4

REPORT INFORMATION
  Report Type: 
  Country: None (occurrence: None)
  Receive Date: 20051110
  Receipt Date: 20051110
  Transmission Date: 20060501
  Serious: Yes (Other)
  Sender: FDA-Public Use
  Company Number: None

PATIENT
  Age: 63 Year
  Sex: Female
  Weight: 72 kg

DRUGS (5)
  1. NIASPAN [Suspect]
     Indication: HYPERLIPIDAEMIA
     Dosage: 500 MG PO QHS
     Route: 048
  2. NIASPAN [Suspect]
     Indication: HYPERTRIGLYCERIDAEMIA
     Dosage: 500 MG PO QHS
     Route: 048
  3. ZETIA [Concomitant]
  4. XANAX [Concomitant]
  5. TRAZODONE HCL [Concomitant]

REACTIONS (2)
  - FLUSHING [None]
  - PARAESTHESIA [None]
